FAERS Safety Report 23651478 (Version 1)
Quarter: 2024Q1

REPORT INFORMATION
  Report Type: Spontaneous
  Country: PL (occurrence: PL)
  Receive Date: 20240320
  Receipt Date: 20240320
  Transmission Date: 20240410
  Serious: Yes (Other)
  Sender: FDA-Public Use
  Company Number: PL-MIRUM PHARMACEUTICALS INTERNATIONAL B.V.-PL-MIR-24-00126

PATIENT

DRUGS (1)
  1. LIVMARLI [Suspect]
     Active Substance: MARALIXIBAT CHLORIDE
     Indication: Alagille syndrome
     Dosage: 380 MICROGRAM/KILOGRAM, QD
     Route: 065

REACTIONS (1)
  - Blood alkaline phosphatase increased [Unknown]
